FAERS Safety Report 10151030 (Version 1)
Quarter: 2014Q2

REPORT INFORMATION
  Report Type: Spontaneous
  Country: US (occurrence: US)
  Receive Date: 20140502
  Receipt Date: 20140502
  Transmission Date: 20141212
  Serious: Yes (Other)
  Sender: FDA-Public Use
  Company Number: US-BAYER-2014-062901

PATIENT
  Sex: Female

DRUGS (2)
  1. SKYLA [Suspect]
     Indication: ENDOMETRIOSIS
     Dosage: UNK
     Dates: start: 20140423
  2. SKYLA [Suspect]
     Indication: MENORRHAGIA

REACTIONS (3)
  - Procedural haemorrhage [None]
  - Procedural pain [None]
  - Drug dispensing error [None]
